FAERS Safety Report 10146936 (Version 2)
Quarter: 2014Q2

REPORT INFORMATION
  Report Type: Spontaneous
  Country: US (occurrence: US)
  Receive Date: 20140501
  Receipt Date: 20140501
  Transmission Date: 20141212
  Serious: Yes (Hospitalization)
  Sender: FDA-Public Use
  Company Number: US-BANPHARM-20142596

PATIENT
  Age: 53 Year
  Sex: Male

DRUGS (2)
  1. NAPROXEN UNKNOWN PRODUCT [Suspect]
  2. DOXYCYCLINE [Suspect]
     Dosage: 100 MG, BID,

REACTIONS (3)
  - Drug interaction [Recovered/Resolved]
  - Anaemia [Recovered/Resolved]
  - Gastric ulcer haemorrhage [Recovered/Resolved]
